FAERS Safety Report 6980780-1 (Version None)
Quarter: 2010Q3

REPORT INFORMATION
  Report Type: 
  Country: None (occurrence: None)
  Receive Date: 20100909
  Receipt Date: 20100825
  Transmission Date: 20110219
  Serious: Yes (Death)
  Sender: FDA-Public Use
  Company Number: AE 2010-233

PATIENT

DRUGS (1)
  1. CLOZAPINE [Suspect]
     Dosage: 20 G

REACTIONS (1)
  - MATERNAL DRUGS AFFECTING FOETUS [None]
